FAERS Safety Report 8388504-0 (Version None)
Quarter: 2012Q2

REPORT INFORMATION
  Report Type: 
  Country: None (occurrence: None)
  Receive Date: 20120525
  Receipt Date: 20120516
  Transmission Date: 20120825
  Serious: No
  Sender: FDA-Public Use
  Company Number: US-ASTRAZENECA-2012SE31854

PATIENT
  Age: 19 Year
  Sex: Male

DRUGS (2)
  1. RHINOCORT [Suspect]
     Route: 045
  2. SYMBICORT [Suspect]
     Route: 055

REACTIONS (3)
  - NASAL CONGESTION [None]
  - COUGH [None]
  - ASTHMA [None]
